FAERS Safety Report 6956881-0 (Version None)
Quarter: 2010Q3

REPORT INFORMATION
  Report Type: 
  Country: None (occurrence: None)
  Receive Date: 20100826
  Receipt Date: 20100811
  Transmission Date: 20110219
  Serious: Yes (Other)
  Sender: FDA-Public Use
  Company Number: 2010-2284

PATIENT
  Age: 55 Year
  Sex: Female
  Weight: 63.5 kg

DRUGS (4)
  1. DYSPORT [Suspect]
     Indication: OFF LABEL USE
     Dosage: 60 UNITS (60 UNITS, SINGLE CYCLE)
     Dates: start: 20100528, end: 20100528
  2. DYSPORT [Suspect]
     Indication: SKIN WRINKLING
     Dosage: 60 UNITS (60 UNITS, SINGLE CYCLE)
     Dates: start: 20100528, end: 20100528
  3. RESTYLANE (HYALURONIC ACID) [Concomitant]
  4. VAGIFEM [Concomitant]

REACTIONS (6)
  - DEAFNESS TRANSITORY [None]
  - DEAFNESS UNILATERAL [None]
  - MIGRAINE [None]
  - NERVE INJURY [None]
  - SUDDEN HEARING LOSS [None]
  - TINNITUS [None]
